FAERS Safety Report 8759999 (Version 2)
Quarter: 2012Q4

REPORT INFORMATION
  Report Type: 
  Country: US (occurrence: US)
  Receive Date: 20120829
  Receipt Date: 20120921
  Transmission Date: 20130627
  Serious: Yes (Death)
  Sender: FDA-Public Use
  Company Number: US-ACTELION-A-US2012-66427

PATIENT
  Age: 75 Year
  Sex: Female

DRUGS (3)
  1. VELETRI [Suspect]
     Indication: PULMONARY ARTERIAL HYPERTENSION
     Dosage: 11 ng/kg, per min
     Route: 042
     Dates: start: 20120518
  2. VELETRI [Suspect]
     Dosage: 15 ng/kg, per min
     Route: 042
     Dates: end: 20120817
  3. ASPIRIN [Concomitant]

REACTIONS (8)
  - Pneumonia [Fatal]
  - Sepsis [Fatal]
  - Respiratory failure [Fatal]
  - Burning sensation [Unknown]
  - Retching [Unknown]
  - Dyspnoea [Not Recovered/Not Resolved]
  - Dizziness [Not Recovered/Not Resolved]
  - Flushing [Unknown]
